FAERS Safety Report 5499626-6 (Version None)
Quarter: 2007Q4

REPORT INFORMATION
  Report Type: 
  Country: None (occurrence: None)
  Receive Date: 20071026
  Receipt Date: 20071024
  Transmission Date: 20080405
  Serious: Yes (Death, Hospitalization)
  Sender: FDA-Public Use
  Company Number: DE-SANOFI-SYNTHELABO-F04200700080

PATIENT
  Sex: Male

DRUGS (6)
  1. FUMADERM [Concomitant]
     Indication: DRUG USE FOR UNKNOWN INDICATION
     Dosage: 3X1 TABLET UNK
     Route: 048
     Dates: end: 20070801
  2. FOLINIC ACID [Suspect]
     Indication: GASTRIC CANCER
     Route: 041
     Dates: start: 20070801, end: 20070801
  3. NOVALGIN [Concomitant]
     Indication: DRUG USE FOR UNKNOWN INDICATION
     Route: 048
     Dates: end: 20070801
  4. FLUOROURACIL [Suspect]
     Indication: GASTRIC CANCER
     Route: 041
     Dates: start: 20070801, end: 20070801
  5. ELOXATIN [Suspect]
     Indication: GASTRIC CANCER
     Route: 041
     Dates: start: 20070801, end: 20070801
  6. NEXIUM [Concomitant]
     Indication: DRUG USE FOR UNKNOWN INDICATION
     Route: 065
     Dates: end: 20070801

REACTIONS (7)
  - BRONCHITIS [None]
  - CIRCULATORY COLLAPSE [None]
  - DEHYDRATION [None]
  - DIARRHOEA [None]
  - GASTROINTESTINAL INFLAMMATION [None]
  - HEPATIC FUNCTION ABNORMAL [None]
  - SEPSIS [None]
